FAERS Safety Report 9405303 (Version 1)
Quarter: 2013Q3

REPORT INFORMATION
  Report Type: Spontaneous
  Country: US (occurrence: US)
  Receive Date: 20130717
  Receipt Date: 20130717
  Transmission Date: 20140515
  Serious: No
  Sender: FDA-Public Use
  Company Number: US-BAYER-2013-086772

PATIENT
  Age: 72 Year
  Sex: Male
  Weight: 78.01 kg

DRUGS (6)
  1. ALEVE CAPLET [Suspect]
     Indication: BACK PAIN
     Dosage: 1-2, BID
     Route: 048
     Dates: start: 201306, end: 20130711
  2. TRIPLEX [Concomitant]
  3. RANITIDINE [Concomitant]
  4. CRESTOR [Concomitant]
  5. PULMICORT [Concomitant]
  6. BAYER ASPIRIN REGIMEN ADULT LOW STRENGTH [Concomitant]

REACTIONS (2)
  - Drug ineffective [None]
  - Incorrect drug administration duration [None]
